FAERS Safety Report 6111684-4 (Version None)
Quarter: 2009Q1

REPORT INFORMATION
  Report Type: 
  Country: None (occurrence: None)
  Receive Date: 20090310
  Receipt Date: 20090310
  Transmission Date: 20090719
  Serious: Yes (Other)
  Sender: FDA-Public Use
  Company Number: None

PATIENT
  Age: 77 Year
  Sex: Male
  Weight: 74.8435 kg

DRUGS (1)
  1. TAMSULOSIN HCL [Suspect]

REACTIONS (9)
  - ARTERIAL THERAPEUTIC PROCEDURE [None]
  - DIZZINESS [None]
  - EJACULATION DISORDER [None]
  - FATIGUE [None]
  - NASAL CONGESTION [None]
  - PROSTATE INFECTION [None]
  - PROSTATIC DISORDER [None]
  - PROSTATOMEGALY [None]
  - URINARY TRACT INFECTION [None]
